FAERS Safety Report 4360895-7 (Version None)
Quarter: 2004Q2

REPORT INFORMATION
  Report Type: 
  Country: None (occurrence: None)
  Receive Date: 20040520
  Receipt Date: 20040512
  Transmission Date: 20050107
  Serious: Yes (Other)
  Sender: FDA-Public Use
  Company Number: 200411674JP

PATIENT
  Age: 70 Year
  Sex: Female

DRUGS (2)
  1. LASIX [Suspect]
     Indication: URINE OUTPUT
  2. UNKNOWN DRUG [Concomitant]

REACTIONS (2)
  - DISSEMINATED INTRAVASCULAR COAGULATION [None]
  - POST PROCEDURAL COMPLICATION [None]
